FAERS Safety Report 6079310-0 (Version None)
Quarter: 2009Q1

REPORT INFORMATION
  Report Type: 
  Country: None (occurrence: None)
  Receive Date: 20090216
  Receipt Date: 20090210
  Transmission Date: 20090719
  Serious: Yes (Death, Hospitalization)
  Sender: FDA-Public Use
  Company Number: US-MERCK-0902USA00469

PATIENT
  Age: 28 Year
  Sex: Male

DRUGS (3)
  1. ZOLINZA [Suspect]
     Indication: BRAIN NEOPLASM
     Route: 048
  2. NEXAVAR [Concomitant]
     Route: 065
  3. RAPAMUNE [Concomitant]
     Route: 065

REACTIONS (4)
  - ACUTE RESPIRATORY DISTRESS SYNDROME [None]
  - OFF LABEL USE [None]
  - PANCYTOPENIA [None]
  - SEPSIS [None]
